FAERS Safety Report 6011333-X (Version None)
Quarter: 2008Q4

REPORT INFORMATION
  Report Type: 
  Country: None (occurrence: None)
  Receive Date: 20081218
  Receipt Date: 20081210
  Transmission Date: 20090506
  Serious: Yes (Hospitalization, Other)
  Sender: FDA-Public Use
  Company Number: GB-ROCHE-602083

PATIENT
  Sex: Male
  Weight: 141.9 kg

DRUGS (6)
  1. ORLISTAT [Suspect]
     Indication: OBESITY
     Route: 048
  2. RAMIPRIL [Concomitant]
     Indication: BLOOD PRESSURE
     Route: 048
  3. WARFARIN SODIUM [Concomitant]
     Route: 048
  4. GLICLAZIDE [Concomitant]
     Route: 048
  5. AMIODARONE HCL [Concomitant]
     Dosage: DRUG REPORTED AS AMIRDORONE.
     Route: 048
  6. METFORMIN HCL [Concomitant]
     Route: 048

REACTIONS (2)
  - DYSPNOEA [None]
  - HEART RATE IRREGULAR [None]
